FAERS Safety Report 6193269-7 (Version None)
Quarter: 2009Q2

REPORT INFORMATION
  Report Type: 
  Country: None (occurrence: None)
  Receive Date: 20090518
  Receipt Date: 20090505
  Transmission Date: 20091009
  Serious: Yes (Hospitalization)
  Sender: FDA-Public Use
  Company Number: B0572771A

PATIENT
  Sex: Female

DRUGS (9)
  1. ONDANSETRON HCL [Suspect]
     Dosage: 8MG SINGLE DOSE
     Route: 042
     Dates: start: 20090306, end: 20090306
  2. GLUCOSE (G5) [Suspect]
     Route: 042
     Dates: start: 20090306, end: 20090306
  3. CALCIUM CHLORIDE [Suspect]
     Dosage: 1G SINGLE DOSE
     Route: 042
     Dates: start: 20090306, end: 20090306
  4. METHYLPREDNISOLONE [Suspect]
     Dosage: 90MG SINGLE DOSE
     Route: 040
     Dates: start: 20090306, end: 20090306
  5. LEUCOVORIN CALCIUM [Suspect]
     Route: 042
     Dates: start: 20090306, end: 20090306
  6. IOBITRIDOL [Suspect]
     Route: 065
     Dates: start: 20090306, end: 20090306
  7. SODIUM CHLORURE [Suspect]
     Route: 042
     Dates: start: 20090306, end: 20090306
  8. ELOXATIN [Suspect]
     Indication: ADENOCARCINOMA
     Dosage: 135MG SINGLE DOSE
     Route: 042
     Dates: start: 20090306, end: 20090306
  9. FLUOROURACIL [Suspect]
     Indication: ADENOCARCINOMA
     Dosage: 600MG SINGLE DOSE
     Route: 040
     Dates: start: 20090306, end: 20090306

REACTIONS (4)
  - IMPLANT SITE EXTRAVASATION [None]
  - IMPLANT SITE INFLAMMATION [None]
  - IMPLANT SITE PAIN [None]
  - LOCALISED OEDEMA [None]
